FAERS Safety Report 11650562 (Version 2)
Quarter: 2016Q3

REPORT INFORMATION
  Report Type: Spontaneous
  Country: US (occurrence: US)
  Receive Date: 20151021
  Receipt Date: 20160808
  Transmission Date: 20161109
  Serious: Yes (Death)
  Sender: FDA-Public Use
  Company Number: US-B.I. PHARMACEUTICALS,INC./RIDGEFIELD-2015-BI-54324PF

PATIENT
  Sex: Female
  Weight: 79.38 kg

DRUGS (33)
  1. PREDNISONE. [Concomitant]
     Active Substance: PREDNISONE
     Indication: PROPHYLAXIS
  2. KLORCON KDUR [Concomitant]
     Indication: BLOOD POTASSIUM DECREASED
     Dosage: 10 MEQ
     Route: 048
  3. ALBUTEROL. [Concomitant]
     Active Substance: ALBUTEROL
     Indication: DYSPNOEA
     Dosage: 15 MG
     Route: 065
     Dates: start: 2011
  4. PROCARDIA [Concomitant]
     Active Substance: NIFEDIPINE
     Indication: CARDIAC DISORDER
     Dosage: 60 MG
     Route: 048
     Dates: start: 2013
  5. COLACE [Concomitant]
     Active Substance: DOCUSATE SODIUM
     Indication: CONSTIPATION
     Dosage: 200 MG
     Route: 065
     Dates: start: 2013
  6. IRON [Concomitant]
     Active Substance: IRON
     Indication: BLOOD IRON DECREASED
     Dosage: 325 MG
     Route: 048
     Dates: start: 2012
  7. DALIRESP [Concomitant]
     Active Substance: ROFLUMILAST
     Indication: RENAL DISORDER
     Dosage: 500 MCG
     Route: 065
     Dates: start: 2014
  8. SPIRIVA [Suspect]
     Active Substance: TIOTROPIUM BROMIDE MONOHYDRATE
     Dosage: 36 MCG
     Route: 055
     Dates: start: 2012
  9. ALDACTONE [Concomitant]
     Active Substance: SPIRONOLACTONE
     Indication: DYSPNOEA
     Dosage: 25 MG
     Route: 048
     Dates: start: 2014
  10. KLONOPIN [Concomitant]
     Active Substance: CLONAZEPAM
     Indication: NERVOUSNESS
     Dosage: 0.5 MG
     Route: 048
     Dates: start: 2012
  11. LABETALOL [Concomitant]
     Active Substance: LABETALOL\LABETALOL HYDROCHLORIDE
     Indication: CARDIAC DISORDER
     Dosage: 4 ANZ
     Route: 065
     Dates: start: 2014
  12. HYDROCODONE [Concomitant]
     Active Substance: HYDROCODONE
     Indication: PAIN
     Dosage: 120 MG
     Route: 065
  13. CLONIDINE HCL [Concomitant]
     Active Substance: CLONIDINE HYDROCHLORIDE
     Indication: DYSPNOEA
     Dosage: 0.3 MG
     Route: 048
  14. LIPITOR [Concomitant]
     Active Substance: ATORVASTATIN CALCIUM
     Indication: BLOOD CHOLESTEROL
     Dosage: 40 MG
     Route: 048
     Dates: start: 2011
  15. ADVAIR DISKUS [Concomitant]
     Active Substance: FLUTICASONE PROPIONATE\SALMETEROL XINAFOATE
     Indication: DYSPNOEA
     Dosage: FORMULATION: INHALER; DOSE PER APPLICATION: 250-50MCG PER DOSE INHALER
     Route: 065
     Dates: start: 2011
  16. KLONOPIN [Concomitant]
     Active Substance: CLONAZEPAM
     Dosage: 3 MG
     Route: 048
     Dates: start: 2012
  17. POTASSIUM CHLORIDE. [Concomitant]
     Active Substance: POTASSIUM CHLORIDE
     Indication: BLOOD POTASSIUM DECREASED
     Dosage: 10 MEQ
     Route: 065
     Dates: start: 2013
  18. HYDROCODONE [Concomitant]
     Active Substance: HYDROCODONE
     Indication: ARTHRITIS
     Dosage: 6 ANZ
     Route: 065
     Dates: start: 2012
  19. TYLENOL [Concomitant]
     Active Substance: ACETAMINOPHEN
     Indication: ARTHRITIS
     Dosage: 6 ANZ
     Route: 065
     Dates: start: 2012
  20. PREDNISONE. [Concomitant]
     Active Substance: PREDNISONE
     Indication: DYSPNOEA
     Dosage: 10 MG
     Route: 048
  21. CYMBALTA [Concomitant]
     Active Substance: DULOXETINE HYDROCHLORIDE
     Indication: MUSCULOSKELETAL DISCOMFORT
     Dosage: 60 MG
     Route: 048
     Dates: start: 2013
  22. LASIX [Concomitant]
     Active Substance: FUROSEMIDE
     Indication: FLUID RETENTION
     Dosage: 80 MG
     Route: 048
     Dates: start: 2011
  23. BABY ASPIRIN [Concomitant]
     Active Substance: ASPIRIN
     Indication: CARDIOVASCULAR DISORDER
     Dosage: 81 MG
     Route: 048
     Dates: start: 2008
  24. SPIRIVA [Suspect]
     Active Substance: TIOTROPIUM BROMIDE MONOHYDRATE
     Indication: CHRONIC OBSTRUCTIVE PULMONARY DISEASE
     Dosage: 18 MCG
     Route: 055
  25. CALCIUM-VIT D [Concomitant]
     Indication: BONE DISORDER
     Dosage: 2 ANZ
     Route: 048
  26. CALCIUM-VIT D [Concomitant]
     Indication: BLOOD CALCIUM DECREASED
  27. PROAIR HFA [Concomitant]
     Active Substance: ALBUTEROL SULFATE
     Indication: DYSPNOEA
     Dosage: 12 PUF
     Route: 065
     Dates: start: 2012
  28. COLACE [Concomitant]
     Active Substance: DOCUSATE SODIUM
     Indication: CARDIAC DISORDER
     Dosage: 60 MG
     Route: 048
  29. NORMODYNE [Concomitant]
     Active Substance: LABETALOL HYDROCHLORIDE
     Indication: BLOOD PRESSURE MEASUREMENT
     Dosage: 400 MG
     Route: 065
  30. CALCIUM-VIT D [Concomitant]
     Indication: VITAMIN D DECREASED
  31. REVATIO [Concomitant]
     Active Substance: SILDENAFIL CITRATE
     Indication: LUNG DISORDER
     Dosage: 60 MG
     Route: 048
     Dates: start: 201101
  32. REVATIO [Concomitant]
     Active Substance: SILDENAFIL CITRATE
     Indication: PULMONARY HYPERTENSION
  33. ZELIRIS [Concomitant]
     Indication: DYSPNOEA
     Dosage: 500 MCG
     Route: 048

REACTIONS (7)
  - Chronic obstructive pulmonary disease [Fatal]
  - Constipation [Unknown]
  - Abasia [Not Recovered/Not Resolved]
  - Peripheral swelling [Unknown]
  - Malaise [Unknown]
  - Dyspnoea [Not Recovered/Not Resolved]
  - Condition aggravated [Not Recovered/Not Resolved]

NARRATIVE: CASE EVENT DATE: 2011
